FAERS Safety Report 8987572 (Version 4)
Quarter: 2013Q3

REPORT INFORMATION
  Report Type: Spontaneous
  Country: JP (occurrence: JP)
  Receive Date: 20121227
  Receipt Date: 20130705
  Transmission Date: 20140515
  Serious: Yes (Hospitalization)
  Sender: FDA-Public Use
  Company Number: JP-009507513-1212JPN007049

PATIENT
  Age: 80 Year
  Sex: Female
  Weight: 52 kg

DRUGS (9)
  1. JANUVIA TABLETS 50MG [Suspect]
     Indication: DIABETES MELLITUS
     Dosage: 50 MG, QD
     Route: 048
     Dates: start: 20111115, end: 20121120
  2. JANUVIA TABLETS 25MG [Suspect]
     Indication: DIABETES MELLITUS
     Dosage: 25 MG, QD
     Route: 048
     Dates: start: 20121112, end: 20121120
  3. BASEN [Concomitant]
     Indication: DIABETES MELLITUS
     Dosage: 0.2 MG, TID
     Route: 048
     Dates: start: 20080107, end: 20121111
  4. BASEN [Concomitant]
     Dosage: 0.3 MG, TID
     Route: 048
     Dates: start: 20121112
  5. LIPITOR [Concomitant]
     Indication: HYPERCHOLESTEROLAEMIA
     Dosage: 10 MG, QD
     Route: 048
     Dates: start: 20080107
  6. FLUITRAN [Concomitant]
     Indication: HYPERTENSION
     Dosage: 1 MG, QD
     Route: 048
     Dates: start: 20080107
  7. GASTER [Concomitant]
     Indication: GASTRITIS
     Dosage: 20 MG, QD
     Dates: start: 20080107
  8. MARZULENE-S [Concomitant]
     Indication: GASTRITIS
     Dosage: 0.67 G, TID
     Route: 048
     Dates: start: 20080107
  9. EXFORGE [Concomitant]
     Indication: HYPERTENSION
     Dosage: 1 DF, QD
     Route: 048
     Dates: start: 20110119

REACTIONS (3)
  - Colitis ulcerative [Recovering/Resolving]
  - Cytomegalovirus enterocolitis [Unknown]
  - Pyrexia [Unknown]
